FAERS Safety Report 20808232 (Version 5)
Quarter: 2022Q4

REPORT INFORMATION
  Report Type: Report from Study
  Country: US (occurrence: US)
  Receive Date: 20220510
  Receipt Date: 20221216
  Transmission Date: 20230113
  Serious: Yes (Hospitalization, Other)
  Sender: FDA-Public Use
  Company Number: US-RECORDATI-2022001791

PATIENT

DRUGS (33)
  1. ISTURISA [Suspect]
     Active Substance: OSILODROSTAT PHOSPHATE
     Indication: Pituitary-dependent Cushing^s syndrome
     Dosage: 5 MILLIGRAM, QD
     Route: 048
     Dates: start: 202107
  2. ISTURISA [Suspect]
     Active Substance: OSILODROSTAT PHOSPHATE
     Dosage: 2.5 MILLIGRAM, BID
     Route: 048
  3. ISTURISA [Suspect]
     Active Substance: OSILODROSTAT PHOSPHATE
     Dosage: 5 MILLIGRAM, BID
     Route: 048
     Dates: start: 20220331
  4. ISTURISA [Suspect]
     Active Substance: OSILODROSTAT PHOSPHATE
     Dosage: UNK, REDUCED DOSE
     Route: 048
     Dates: start: 2022
  5. XALATAN [Concomitant]
     Active Substance: LATANOPROST
     Indication: Eye disorder
     Dosage: 2 GTT DROPS, QD, NIGHTLY
  6. VALACYCLOVIR [Concomitant]
     Active Substance: VALACYCLOVIR HYDROCHLORIDE
     Indication: Product used for unknown indication
  7. LEVEMIR [Concomitant]
     Active Substance: INSULIN DETEMIR
     Indication: Product used for unknown indication
  8. BUMEX [Concomitant]
     Active Substance: BUMETANIDE
     Indication: Product used for unknown indication
  9. MARINOL [Concomitant]
     Active Substance: DRONABINOL
     Indication: Nausea
     Dosage: 1 DOSAGE FORM, BID
     Route: 048
     Dates: start: 20220613, end: 20220706
  10. MARINOL [Concomitant]
     Active Substance: DRONABINOL
     Indication: Vomiting
  11. ATROPINE\DIPHENOXYLATE [Concomitant]
     Active Substance: ATROPINE\DIPHENOXYLATE
     Indication: Product used for unknown indication
  12. SIMVASTATIN [Concomitant]
     Active Substance: SIMVASTATIN
     Indication: Product used for unknown indication
  13. ADVAIR HFA [Concomitant]
     Active Substance: FLUTICASONE PROPIONATE\SALMETEROL XINAFOATE
     Indication: Product used for unknown indication
  14. FERROUS SULFATE [Concomitant]
     Active Substance: FERROUS SULFATE
     Indication: Product used for unknown indication
  15. LISINOPRIL [Concomitant]
     Active Substance: LISINOPRIL
     Indication: Product used for unknown indication
  16. ZOFRAN [Concomitant]
     Active Substance: ONDANSETRON HYDROCHLORIDE
     Indication: Nausea
     Dosage: 1 DOSAGE FORM, TID, BEFORE MEALS
     Route: 048
     Dates: start: 20220613, end: 20220801
  17. ZOFRAN [Concomitant]
     Active Substance: ONDANSETRON HYDROCHLORIDE
     Indication: Vomiting
  18. JANUVIA [Concomitant]
     Active Substance: SITAGLIPTIN PHOSPHATE
     Indication: Product used for unknown indication
  19. METFORMIN [Concomitant]
     Active Substance: METFORMIN HYDROCHLORIDE
     Indication: Product used for unknown indication
  20. TOPROL XL [Concomitant]
     Active Substance: METOPROLOL SUCCINATE
     Indication: Product used for unknown indication
  21. PROVENTIL [Concomitant]
     Active Substance: ALBUTEROL
     Indication: Asthma
     Dosage: UNK, PRN, 2 PUFFS EVERY 6 HOURS
     Dates: start: 20210312
  22. PROVENTIL [Concomitant]
     Active Substance: ALBUTEROL
     Indication: Wheezing
  23. VENTOLIN [Concomitant]
     Active Substance: ALBUTEROL SULFATE
     Indication: Asthma
     Dosage: UNK UNK, Q6H, 2 PUFFS EVERY 6 HOURS AS NEEDED
     Dates: start: 20210312
  24. VENTOLIN [Concomitant]
     Active Substance: ALBUTEROL SULFATE
     Indication: Wheezing
  25. LOMOTIL [Concomitant]
     Active Substance: ATROPINE SULFATE\DIPHENOXYLATE HYDROCHLORIDE
     Indication: Diarrhoea
     Dosage: 2.5-0.025 MG 1 TABLET BY MOUTH 4 TIMES A DAY AS NEEDED
     Route: 048
     Dates: start: 20220613, end: 20220720
  26. JARDIANCE [Concomitant]
     Active Substance: EMPAGLIFLOZIN
     Indication: Cardiac failure
     Dosage: 1 DOSAGE FORM, QD
     Route: 048
     Dates: start: 20220502, end: 20220623
  27. ADVAIR HFA [Concomitant]
     Active Substance: FLUTICASONE PROPIONATE\SALMETEROL XINAFOATE
     Indication: Asthma
     Dosage: 2 PUFFS 2 TIMES A DAY
  28. CORTEF [Concomitant]
     Active Substance: HYDROCORTISONE
     Indication: Neuroendocrine tumour
     Dosage: 10 MILLIGRAM, QD, BEDTIME
     Route: 048
     Dates: start: 20220304, end: 20220914
  29. CORTEF [Concomitant]
     Active Substance: HYDROCORTISONE
     Indication: Cushing^s syndrome
     Dosage: 20 MILLIGRAM, QD
     Route: 048
     Dates: start: 20220305
  30. INCRUSE ELLIPTA [Concomitant]
     Active Substance: UMECLIDINIUM BROMIDE
  31. LANTUS [Concomitant]
     Active Substance: INSULIN GLARGINE
     Indication: Diabetes mellitus
     Dosage: 5 INTERNATIONAL UNIT, QD, NIGHTLY
     Route: 058
     Dates: start: 20220304
  32. IMODIUM [Concomitant]
     Active Substance: LOPERAMIDE HYDROCHLORIDE
     Indication: Diarrhoea
     Dosage: 1 DOSAGE FORM, Q6H, AS AEEDED
     Route: 048
     Dates: start: 20220526
  33. NOVOLOG [Concomitant]
     Active Substance: INSULIN ASPART
     Indication: Product used for unknown indication
     Dosage: UNK
     Dates: start: 20220301

REACTIONS (16)
  - Renal impairment [Recovering/Resolving]
  - Hyperkalaemia [Recovered/Resolved]
  - Dehydration [Recovering/Resolving]
  - Hypophagia [Recovering/Resolving]
  - Chest pain [Recovering/Resolving]
  - Acute kidney injury [Recovering/Resolving]
  - Hypovolaemia [Unknown]
  - Asthenia [Recovering/Resolving]
  - Blood potassium decreased [Recovering/Resolving]
  - Nausea [Recovering/Resolving]
  - Blood pressure decreased [Recovering/Resolving]
  - Diarrhoea [Recovering/Resolving]
  - Abdominal pain [Recovered/Resolved]
  - Diarrhoea [Unknown]
  - Asthenia [Unknown]
  - Off label use [Recovered/Resolved]

NARRATIVE: CASE EVENT DATE: 20210701
